FAERS Safety Report 15936286 (Version 1)
Quarter: 2019Q1

REPORT INFORMATION
  Report Type: Report from Study
  Country: PT (occurrence: PT)
  Receive Date: 20190208
  Receipt Date: 20190208
  Transmission Date: 20190417
  Serious: Yes (Death)
  Sender: FDA-Public Use
  Company Number: PT-ACCORD-105086

PATIENT
  Age: 63 Year
  Sex: Male

DRUGS (2)
  1. MYCOPHENOLIC ACID. [Suspect]
     Active Substance: MYCOPHENOLIC ACID
     Indication: IMMUNOSUPPRESSANT DRUG THERAPY
     Dosage: 2500 MG DAILY
     Route: 065
  2. EVEROLIMUS. [Suspect]
     Active Substance: EVEROLIMUS
     Indication: IMMUNOSUPPRESSANT DRUG THERAPY
     Dosage: 1 MG DAILY
     Route: 065

REACTIONS (6)
  - Human herpesvirus 8 infection [Fatal]
  - Lung infiltration [Fatal]
  - Respiratory failure [Fatal]
  - Dyspnoea [Fatal]
  - Concomitant disease aggravated [Fatal]
  - Kaposi^s sarcoma [Fatal]
